FAERS Safety Report 7297752-2 (Version None)
Quarter: 2011Q1

REPORT INFORMATION
  Report Type: 
  Country: None (occurrence: None)
  Receive Date: 20110214
  Receipt Date: 20110214
  Transmission Date: 20110831
  Serious: Yes (Life-Threatening, Hospitalization, Disabling)
  Sender: FDA-Public Use
  Company Number: None

PATIENT
  Age: 34 Year
  Sex: Female
  Weight: 114.3065 kg

DRUGS (1)
  1. SOLODYN [Suspect]
     Indication: ACNE
     Dosage: 1 DAILY PO
     Route: 048
     Dates: start: 20101125, end: 20101129

REACTIONS (2)
  - VISUAL ACUITY REDUCED [None]
  - BENIGN INTRACRANIAL HYPERTENSION [None]
